FAERS Safety Report 7810807-6 (Version None)
Quarter: 2011Q4

REPORT INFORMATION
  Report Type: 
  Country: None (occurrence: None)
  Receive Date: 20111012
  Receipt Date: 20111012
  Transmission Date: 20120403
  Serious: No
  Sender: FDA-Public Use
  Company Number: None

PATIENT
  Age: 82 Year

DRUGS (1)
  1. CIPROFLOXACIN [Suspect]

REACTIONS (4)
  - TENDON RUPTURE [None]
  - TENDONITIS [None]
  - IMMUNE SYSTEM DISORDER [None]
  - RASH [None]
